FAERS Safety Report 20663344 (Version 1)
Quarter: 2022Q1

REPORT INFORMATION
  Report Type: Spontaneous
  Country: US (occurrence: None)
  Receive Date: 20220331
  Receipt Date: 20220331
  Transmission Date: 20220423
  Serious: Yes (Life-Threatening, Disabling, Other)
  Sender: FDA-Public Use
  Company Number: None

PATIENT
  Age: 24 Year
  Sex: Female
  Weight: 49.5 kg

DRUGS (3)
  1. CHLORHEXIDINE GLUCONATE [Suspect]
     Active Substance: CHLORHEXIDINE GLUCONATE
     Indication: Periodontal disease
     Dosage: FREQUENCY : TWICE A DAY;?OTHER ROUTE : BRUSHED ONTO INNER AND OUTER GUMLINES;?
     Route: 050
     Dates: start: 20220320, end: 20220328
  2. Kirkland signature adult multivitamin gummies [Concomitant]
  3. IRON [Concomitant]
     Active Substance: IRON

REACTIONS (5)
  - Hypersensitivity [None]
  - Tongue discomfort [None]
  - Glossodynia [None]
  - Taste disorder [None]
  - Oral discomfort [None]

NARRATIVE: CASE EVENT DATE: 20220328
